FAERS Safety Report 8166598-5 (Version None)
Quarter: 2012Q1

REPORT INFORMATION
  Report Type: 
  Country: None (occurrence: None)
  Receive Date: 20120227
  Receipt Date: 20110510
  Transmission Date: 20120608
  Serious: Yes (Other)
  Sender: FDA-Public Use
  Company Number: US-MYLANLABS-2011S1009807

PATIENT
  Sex: Female

DRUGS (2)
  1. AMNESTEEM [Suspect]
     Dates: start: 20090601, end: 20100101
  2. ACCUTANE [Suspect]
     Dates: start: 20090601, end: 20100101

REACTIONS (1)
  - CROHN'S DISEASE [None]
